FAERS Safety Report 7394833-X (Version None)
Quarter: 2011Q2

REPORT INFORMATION
  Report Type: 
  Country: None (occurrence: None)
  Receive Date: 20110405
  Receipt Date: 20110329
  Transmission Date: 20111010
  Serious: Yes (Hospitalization)
  Sender: FDA-Public Use
  Company Number: A0898650A

PATIENT
  Age: 70 Year
  Sex: Female

DRUGS (6)
  1. GLUCOTROL [Concomitant]
  2. CARDIZEM [Concomitant]
  3. AVANDIA [Suspect]
     Dosage: 2MG PER DAY
     Route: 048
     Dates: start: 20020401, end: 20031217
  4. GLUCOPHAGE [Concomitant]
  5. OMEPRAZOLE [Concomitant]
  6. INSULIN [Concomitant]

REACTIONS (3)
  - CORONARY ARTERY BYPASS [None]
  - ARTERIOSCLEROSIS [None]
  - MYOCARDIAL INFARCTION [None]
